FAERS Safety Report 6813664-X (Version None)
Quarter: 2010Q3

REPORT INFORMATION
  Report Type: 
  Country: None (occurrence: None)
  Receive Date: 20100701
  Receipt Date: 20100622
  Transmission Date: 20110219
  Serious: Yes (Other)
  Sender: FDA-Public Use
  Company Number: US-AMGEN-QUU417863

PATIENT
  Sex: Male
  Weight: 65.8 kg

DRUGS (19)
  1. ARANESP [Suspect]
     Indication: RENAL FAILURE CHRONIC
     Route: 058
     Dates: start: 20090715
  2. PROCRIT [Suspect]
     Indication: RENAL FAILURE CHRONIC
     Route: 058
     Dates: start: 20080625
  3. LASIX [Suspect]
  4. FINASTERIDE [Suspect]
  5. IMURAN [Suspect]
  6. LANTUS [Concomitant]
  7. KLOR-CON [Concomitant]
  8. METOPROLOL TARTRATE [Concomitant]
  9. CENTRUM [Concomitant]
  10. VITAMIN B-12 [Concomitant]
  11. VITAMIN D [Concomitant]
  12. PANTOPRAZOLE [Concomitant]
  13. FLOMAX [Concomitant]
  14. PREDNISONE TAB [Concomitant]
  15. PANCRELIPASE [Concomitant]
  16. VITAMIN C [Concomitant]
  17. CELLCEPT [Concomitant]
  18. FOSAMAX [Concomitant]
  19. CREON [Concomitant]

REACTIONS (7)
  - ANAEMIA [None]
  - ANISOCYTOSIS [None]
  - MACROCYTOSIS [None]
  - MARROW HYPERPLASIA [None]
  - POIKILOCYTOSIS [None]
  - POLYCHROMASIA [None]
  - THERAPEUTIC RESPONSE DECREASED [None]
